FAERS Safety Report 9748598 (Version 1)
Quarter: 2013Q4

REPORT INFORMATION
  Report Type: Spontaneous
  Country: GB (occurrence: None)
  Receive Date: 20131209
  Receipt Date: 20131209
  Transmission Date: 20140711
  Serious: Yes (Death, Other)
  Sender: FDA-Public Use
  Company Number: GB-MDCO-13-00053

PATIENT
  Sex: Male

DRUGS (2)
  1. BIVALIRUDIN [Suspect]
     Indication: PRODUCT USED FOR UNKNOWN INDICATION
  2. TICAGRELOR (TICAGRELOR) [Suspect]
     Indication: PRODUCT USED FOR UNKNOWN INDICATION
     Dosage: 180 MG LOADING DOSE, (ONCE), ORAL
     Route: 048

REACTIONS (2)
  - Presyncope [None]
  - Thrombosis in device [None]
